FAERS Safety Report 18490816 (Version 1)
Quarter: 2020Q4

REPORT INFORMATION
  Report Type: Report from Study
  Country: CZ (occurrence: CZ)
  Receive Date: 20201111
  Receipt Date: 20201111
  Transmission Date: 20210114
  Serious: Yes (Hospitalization, Other)
  Sender: FDA-Public Use
  Company Number: CZ-TEVA-2020-CZ-1846013

PATIENT
  Age: 37 Year
  Sex: Female

DRUGS (1)
  1. COPAXONE [Suspect]
     Active Substance: GLATIRAMER ACETATE
     Indication: MULTIPLE SCLEROSIS
     Route: 058
     Dates: start: 20191002

REACTIONS (11)
  - Chest discomfort [Recovered/Resolved]
  - Lip discolouration [Recovered/Resolved]
  - Immediate post-injection reaction [Recovered/Resolved]
  - Chills [Recovered/Resolved]
  - Ocular hyperaemia [Recovered/Resolved]
  - Dyspnoea [Recovered/Resolved]
  - Feeling hot [Recovered/Resolved]
  - Vomiting [Recovered/Resolved]
  - Pyrexia [Recovered/Resolved]
  - Wrong technique in product usage process [Unknown]
  - Swelling face [Recovered/Resolved]

NARRATIVE: CASE EVENT DATE: 20201031
